FAERS Safety Report 9915198 (Version 2)
Quarter: 2014Q1

REPORT INFORMATION
  Report Type: Report from Study
  Country: AU (occurrence: AU)
  Receive Date: 20140220
  Receipt Date: 20140318
  Transmission Date: 20141002
  Serious: Yes (Death, Hospitalization, Other)
  Sender: FDA-Public Use
  Company Number: AU-ROCHE-1353737

PATIENT
  Age: 44 Year
  Sex: Female
  Weight: 66 kg

DRUGS (5)
  1. AVASTIN [Suspect]
     Indication: BRAIN NEOPLASM
     Route: 042
     Dates: start: 2012, end: 201209
  2. TEMOZOLOMIDE [Suspect]
     Indication: BRAIN NEOPLASM
     Route: 048
     Dates: start: 2012, end: 2013
  3. KEPPRA [Concomitant]
     Indication: CONVULSION
     Route: 048
  4. ONDANSETRON [Concomitant]
     Route: 048
  5. DEXAMETHASONE [Concomitant]
     Indication: BRAIN NEOPLASM
     Route: 048

REACTIONS (3)
  - Disease progression [Fatal]
  - Neoplasm recurrence [Unknown]
  - Wound infection [Unknown]
